FAERS Safety Report 21311409 (Version 2)
Quarter: 2022Q4

REPORT INFORMATION
  Report Type: Report from Study
  Country: AU (occurrence: AU)
  Receive Date: 20220909
  Receipt Date: 20221003
  Transmission Date: 20230113
  Serious: Yes (Hospitalization)
  Sender: FDA-Public Use
  Company Number: AU-SA-SAC20220831000834

PATIENT
  Age: 56 Year
  Sex: Male
  Weight: 77.6 kg

DRUGS (25)
  1. ISATUXIMAB [Suspect]
     Active Substance: ISATUXIMAB
     Indication: Primary amyloidosis
     Dosage: 770 MG, QOW
     Route: 042
     Dates: start: 20220822, end: 20220822
  2. POMALIDOMIDE [Suspect]
     Active Substance: POMALIDOMIDE
     Indication: Primary amyloidosis
     Dosage: 4 MG (D1-21 EACH YCLE)
     Route: 048
     Dates: start: 20220822, end: 20220822
  3. DEXAMETHASONE [Suspect]
     Active Substance: DEXAMETHASONE
     Indication: Primary amyloidosis
     Dosage: 12 MG, QW
     Route: 048
     Dates: start: 20220822, end: 20220822
  4. DEXAMETHASONE [Suspect]
     Active Substance: DEXAMETHASONE
     Dosage: 8 MG, QW
     Dates: start: 20220829, end: 20220829
  5. VALACYCLOVIR HYDROCHLORIDE [Concomitant]
     Active Substance: VALACYCLOVIR HYDROCHLORIDE
     Indication: Antiviral prophylaxis
     Dosage: 500 MG, QD
     Route: 048
     Dates: start: 2021
  6. AMIODARONE [Concomitant]
     Active Substance: AMIODARONE
     Indication: Atrial fibrillation
     Dosage: 200 MG, QD
     Route: 048
     Dates: start: 20220308
  7. ZOMETA [Concomitant]
     Active Substance: ZOLEDRONIC ACID
     Indication: Prophylaxis
     Dosage: 4 MG, Q5W
     Route: 042
     Dates: start: 20211115
  8. RESPIRIN [HEPTAMINOL HYDROCHLORIDE] [Concomitant]
     Indication: Antibiotic prophylaxis
     Dosage: 800/160 MG
     Route: 048
     Dates: start: 2021
  9. NU-LAX [Concomitant]
     Indication: Constipation
     Dosage: 1 DF, PRN
     Route: 048
  10. PANTOPRAZOLE [Concomitant]
     Active Substance: PANTOPRAZOLE
     Indication: Gastrooesophageal reflux prophylaxis
     Dosage: 20 MG, QD
     Route: 048
     Dates: start: 20220318
  11. PANDA [Concomitant]
     Indication: Premedication
     Dosage: 1 G, QW
     Route: 048
     Dates: start: 20220517
  12. MONTELUKAST [Concomitant]
     Active Substance: MONTELUKAST SODIUM
     Indication: Premedication
     Dosage: 10 MG, QW
     Route: 048
     Dates: start: 20220517
  13. PROMETHAZINE [Concomitant]
     Active Substance: PROMETHAZINE HYDROCHLORIDE
     Indication: Premedication
     Dosage: 12.5 MG, 1X
     Route: 042
     Dates: start: 20220517
  14. PROCTOSEDYL [Concomitant]
     Active Substance: DIBUCAINE HYDROCHLORIDE\HYDROCORTISONE
     Indication: Haemorrhoids
     Dosage: 1 UNK, PRN
     Route: 061
     Dates: start: 202201
  15. DOCUSATE SODIUM\SENNOSIDE B [Concomitant]
     Active Substance: DOCUSATE SODIUM\SENNOSIDE B
     Indication: Constipation
     Dosage: 1 DF, PRN
     Route: 048
     Dates: start: 20220630
  16. MOLNUPIRAVIR [Concomitant]
     Active Substance: MOLNUPIRAVIR
     Indication: COVID-19
     Dosage: 800 MG, QD
     Route: 048
     Dates: start: 20220708
  17. DOXYCYCLINE [Concomitant]
     Active Substance: DOXYCYCLINE
     Indication: Antibiotic prophylaxis
     Dosage: 100 MG
     Route: 048
     Dates: start: 20220709
  18. AMOXICILLIN\CLAVULANATE POTASSIUM [Concomitant]
     Active Substance: AMOXICILLIN\CLAVULANATE POTASSIUM
     Indication: Antibiotic prophylaxis
     Dosage: 1 DF
     Route: 048
     Dates: start: 20220712
  19. BROMHEXINE [Concomitant]
     Active Substance: BROMHEXINE
     Indication: COVID-19
     Dosage: 8 MG
     Route: 048
     Dates: start: 20220712
  20. CHLOROFORM\CODEINE PHOSPHATE\DRIMIA MARITIMA BULB [Concomitant]
     Active Substance: CHLOROFORM\CODEINE PHOSPHATE\DRIMIA MARITIMA BULB
     Indication: COVID-19
     Dosage: 30 MG, PRN
     Route: 048
     Dates: start: 20220713
  21. SPIRONOLACTONE [Concomitant]
     Active Substance: SPIRONOLACTONE
     Indication: Oedema
     Dosage: 25 MG
     Route: 048
     Dates: start: 20220726
  22. LAXETTES [SENNOSIDE A+B CALCIUM] [Concomitant]
     Indication: Constipation
     Dosage: 1 DF
     Route: 048
     Dates: start: 20220723
  23. FUROSEMIDE [Concomitant]
     Active Substance: FUROSEMIDE
     Indication: Oedema
     Dosage: UNK
     Route: 048
     Dates: start: 20220804
  24. GLYCERIN SUPPOSITORIES [Concomitant]
     Indication: Constipation
     Dosage: 1 UNK, PRN
     Dates: start: 20220815
  25. DOMPERIDONE [Concomitant]
     Active Substance: DOMPERIDONE
     Indication: Constipation
     Dosage: 10 MG
     Route: 048
     Dates: start: 20220823

REACTIONS (1)
  - Pneumonia [Not Recovered/Not Resolved]

NARRATIVE: CASE EVENT DATE: 20220829
